FAERS Safety Report 21747171 (Version 2)
Quarter: 2023Q2

REPORT INFORMATION
  Report Type: Report from Study
  Country: US (occurrence: US)
  Receive Date: 20221219
  Receipt Date: 20230410
  Transmission Date: 20230722
  Serious: Yes (Other)
  Sender: FDA-Public Use
  Company Number: US-KYOWAKIRIN-2022BKK019612

PATIENT

DRUGS (2)
  1. CRYSVITA [Suspect]
     Active Substance: BUROSUMAB-TWZA
     Indication: Phosphorus metabolism disorder
     Dosage: 10 MG, 1X/2 WEEKS
     Route: 058
     Dates: start: 20221108
  2. CRYSVITA [Suspect]
     Active Substance: BUROSUMAB-TWZA
     Dosage: 10 MG, 1X/2 WEEKS
     Route: 058

REACTIONS (18)
  - Metastases to meninges [Unknown]
  - Moyamoya disease [Unknown]
  - Bone disorder [Unknown]
  - Gait disturbance [Unknown]
  - Wrist deformity [Unknown]
  - Ankle deformity [Unknown]
  - Knee deformity [Unknown]
  - Anxiety [Unknown]
  - Blood phosphorus decreased [Unknown]
  - Procedural pain [Unknown]
  - Abdominal pain upper [Unknown]
  - Blood alkaline phosphatase increased [Unknown]
  - Blood parathyroid hormone increased [Recovering/Resolving]
  - Vitamin D decreased [Recovering/Resolving]
  - Pyrexia [Unknown]
  - Headache [Unknown]
  - Pain in extremity [Recovering/Resolving]
  - Product use in unapproved indication [Not Recovered/Not Resolved]

NARRATIVE: CASE EVENT DATE: 20221108
